FAERS Safety Report 13721344 (Version 3)
Quarter: 2017Q3

REPORT INFORMATION
  Report Type: Report from Study
  Country: CA (occurrence: CA)
  Receive Date: 20170706
  Receipt Date: 20170928
  Transmission Date: 20171127
  Serious: Yes (Other)
  Sender: FDA-Public Use
  Company Number: CA-JNJFOC-20170507078

PATIENT
  Age: 65 Year
  Sex: Male
  Weight: 113.4 kg

DRUGS (5)
  1. CIALIS [Concomitant]
     Active Substance: TADALAFIL
     Route: 065
     Dates: start: 201708
  2. COVERSYL PLUS [Concomitant]
     Active Substance: INDAPAMIDE\PERINDOPRIL
     Indication: HYPERTENSION
     Route: 065
     Dates: start: 2013
  3. STELARA [Suspect]
     Active Substance: USTEKINUMAB
     Indication: PSORIASIS
     Route: 058
     Dates: start: 20120911
  4. ALEVE [Concomitant]
     Active Substance: NAPROXEN SODIUM
     Indication: ARTHRALGIA
     Route: 065
  5. STELARA [Suspect]
     Active Substance: USTEKINUMAB
     Indication: PSORIASIS
     Route: 058

REACTIONS (4)
  - Knee arthroplasty [Not Recovered/Not Resolved]
  - Musculoskeletal discomfort [Unknown]
  - Carpal tunnel syndrome [Recovering/Resolving]
  - Neoplasm malignant [Recovered/Resolved]

NARRATIVE: CASE EVENT DATE: 20170410
